FAERS Safety Report 5642512-9 (Version None)
Quarter: 2008Q1

REPORT INFORMATION
  Report Type: 
  Country: None (occurrence: None)
  Receive Date: 20080227
  Receipt Date: 20080227
  Transmission Date: 20080703
  Serious: No
  Sender: FDA-Public Use
  Company Number: None

PATIENT
  Age: 80 Year
  Sex: Male
  Weight: 70.7611 kg

DRUGS (3)
  1. GLUCOVANCE [Suspect]
     Indication: DIABETES MELLITUS
     Dosage: 2.5/500 BID PO
     Route: 048
     Dates: start: 20050101
  2. GLUCOVANCE [Suspect]
     Indication: DIABETES MELLITUS
     Dosage: 2.5/500 BID PO
     Route: 048
     Dates: start: 20060101
  3. GLUCOVANCE [Suspect]
     Indication: DIABETES MELLITUS
     Dosage: 2.5/500 BID PO
     Route: 048
     Dates: start: 20070101

REACTIONS (1)
  - NO THERAPEUTIC RESPONSE [None]
